FAERS Safety Report 6316043-7 (Version None)
Quarter: 2009Q3

REPORT INFORMATION
  Report Type: 
  Country: None (occurrence: None)
  Receive Date: 20090820
  Receipt Date: 20090810
  Transmission Date: 20100115
  Serious: Yes (Other)
  Sender: FDA-Public Use
  Company Number: US-AMGEN-QUU359590

PATIENT
  Sex: Male

DRUGS (2)
  1. ENBREL [Suspect]
     Indication: PSORIATIC ARTHROPATHY
     Route: 058
     Dates: start: 20070601
  2. LEFLUNOMIDE [Concomitant]
     Route: 048

REACTIONS (2)
  - ANAEMIA [None]
  - CORONARY ARTERY OCCLUSION [None]
